FAERS Safety Report 19815915 (Version 1)
Quarter: 2021Q3

REPORT INFORMATION
  Report Type: Spontaneous
  Country: US (occurrence: US)
  Receive Date: 20210909
  Receipt Date: 20210909
  Transmission Date: 20211014
  Serious: No
  Sender: FDA-Public Use
  Company Number: US-NKFPHARMA-2021MPSPO00022

PATIENT
  Age: 24 Year
  Sex: Female

DRUGS (2)
  1. ENOXAPARIN SODIUM INJECTION, USP 150MG/ML (150MG PER ML) [Suspect]
     Active Substance: ENOXAPARIN SODIUM
     Indication: COAGULOPATHY
     Dosage: 120 MG PER 0.8 ML
     Route: 058
     Dates: start: 202106
  2. ENOXAPARIN SODIUM INJECTION, USP 150MG/ML (150MG PER ML) [Suspect]
     Active Substance: ENOXAPARIN SODIUM

REACTIONS (3)
  - Needle issue [Unknown]
  - Injection site pain [Unknown]
  - Injection site bruising [Unknown]
